FAERS Safety Report 4352313-X (Version None)
Quarter: 2004Q2

REPORT INFORMATION
  Report Type: 
  Country: None (occurrence: None)
  Receive Date: 20040430
  Receipt Date: 20030815
  Transmission Date: 20050107
  Serious: Yes (Other)
  Sender: FDA-Public Use
  Company Number: 22080 (0)

PATIENT
  Age: 24 Year
  Sex: Female

DRUGS (1)
  1. ALDARA [Suspect]
     Indication: CONDYLOMA ACUMINATUM
     Dosage: 1 DOSAGE FORMS (3 IN 1WEEK(S)), TOPICAL
     Route: 061
     Dates: start: 20030725, end: 20030809

REACTIONS (10)
  - APPLICATION SITE BURNING [None]
  - APPLICATION SITE ERYTHEMA [None]
  - APPLICATION SITE OEDEMA [None]
  - APPLICATION SITE PAIN [None]
  - APPLICATION SITE PRURITUS [None]
  - APPLICATION SITE ULCER [None]
  - FUNGAL INFECTION [None]
  - HEADACHE [None]
  - PAIN [None]
  - PYREXIA [None]
